FAERS Safety Report 9006223 (Version 1)
Quarter: 2013Q1

REPORT INFORMATION
  Report Type: Spontaneous
  Country: US (occurrence: US)
  Receive Date: 20130110
  Receipt Date: 20130110
  Transmission Date: 20140127
  Serious: Yes (Other)
  Sender: FDA-Public Use
  Company Number: US-009507513-0901USA02264

PATIENT
  Sex: Male
  Weight: 26.6 kg

DRUGS (3)
  1. SINGULAIR [Suspect]
     Indication: RHINITIS ALLERGIC
     Dosage: 4 MG, QD
     Route: 048
     Dates: start: 20071009, end: 20080811
  2. LORATADINE [Concomitant]
     Dosage: 5 ML, QD
     Dates: start: 20071009, end: 20080109
  3. FLUTICASONE PROPIONATE [Concomitant]
     Dosage: 100 ?G, QD
     Dates: start: 20071009, end: 20080606

REACTIONS (1)
  - Aggression [Recovering/Resolving]
